FAERS Safety Report 6181521-0 (Version None)
Quarter: 2009Q2

REPORT INFORMATION
  Report Type: 
  Country: None (occurrence: None)
  Receive Date: 20090501
  Receipt Date: 20090423
  Transmission Date: 20091009
  Serious: Yes (Hospitalization)
  Sender: FDA-Public Use
  Company Number: GXKR2009GB05007

PATIENT
  Age: 37 Year
  Sex: Male

DRUGS (1)
  1. FLECAINIDE (NGX) (FLECAINIDE) UNKNOWN [Suspect]
     Dosage: 1500 MG

REACTIONS (9)
  - ACIDOSIS [None]
  - BRUGADA SYNDROME [None]
  - BUNDLE BRANCH BLOCK RIGHT [None]
  - CHEST DISCOMFORT [None]
  - DRUG TOXICITY [None]
  - DYSPNOEA [None]
  - HYPOTENSION [None]
  - OVERDOSE [None]
  - TACHYCARDIA [None]
